FAERS Safety Report 5405437-X (Version None)
Quarter: 2007Q3

REPORT INFORMATION
  Report Type: 
  Country: None (occurrence: None)
  Receive Date: 20070803
  Receipt Date: 20070725
  Transmission Date: 20080115
  Serious: Yes (Death, Life-Threatening, Hospitalization, Other)
  Sender: FDA-Public Use
  Company Number: CH-PFIZER INC-2007047193

PATIENT
  Sex: Male
  Weight: 92 kg

DRUGS (4)
  1. SUTENT [Suspect]
     Indication: RENAL CELL CARCINOMA STAGE UNSPECIFIED
     Route: 048
     Dates: start: 20070516, end: 20070605
  2. SOTALOL HYDROCHLORIDE [Concomitant]
     Route: 048
  3. LASIX [Concomitant]
     Route: 048
  4. DIGOXIN [Concomitant]
     Route: 048

REACTIONS (2)
  - RENAL FAILURE [None]
  - THROMBOCYTOPENIA [None]
